FAERS Safety Report 25838005 (Version 1)
Quarter: 2025Q3

REPORT INFORMATION
  Report Type: Spontaneous
  Country: US (occurrence: US)
  Receive Date: 20250923
  Receipt Date: 20250923
  Transmission Date: 20251020
  Serious: Yes (Other)
  Sender: BRISTOL-MYERS SQUIBB COMPANY
  Company Number: US-BRISTOL-MYERS SQUIBB COMPANY-2025-129018

PATIENT
  Age: 59 Year
  Sex: Female

DRUGS (2)
  1. ORENCIA [Suspect]
     Active Substance: ABATACEPT
     Indication: Rheumatoid arthritis
     Dates: start: 202508
  2. ORENCIA [Suspect]
     Active Substance: ABATACEPT
     Dosage: EVERY OTHER WEEK
     Dates: start: 202508

REACTIONS (8)
  - Increased tendency to bruise [Unknown]
  - Oral herpes [Unknown]
  - Colitis [Unknown]
  - Cough [Unknown]
  - Constipation [Unknown]
  - Chest pain [Unknown]
  - Iron deficiency [Unknown]
  - Animal scratch [Unknown]
